FAERS Safety Report 18949010 (Version 1)
Quarter: 2021Q1

REPORT INFORMATION
  Report Type: Spontaneous
  Country: US (occurrence: US)
  Receive Date: 20210227
  Receipt Date: 20210227
  Transmission Date: 20210420
  Serious: No
  Sender: FDA-Public Use
  Company Number: US-THERATECHNOLOGIES INC.-2021-THE-IBA-000051

PATIENT
  Age: 56 Year

DRUGS (1)
  1. TROGARZO [Suspect]
     Active Substance: IBALIZUMAB-UIYK
     Indication: PRODUCT USED FOR UNKNOWN INDICATION
     Route: 042

REACTIONS (1)
  - Biopsy [Unknown]

NARRATIVE: CASE EVENT DATE: 20210211
